FAERS Safety Report 9103785 (Version 2)
Quarter: 2013Q1

REPORT INFORMATION
  Report Type: Spontaneous
  Country: DK (occurrence: DK)
  Receive Date: 20130219
  Receipt Date: 20130322
  Transmission Date: 20140127
  Serious: Yes (Other)
  Sender: FDA-Public Use
  Company Number: DK-JNJFOC-20130208267

PATIENT
  Sex: Female

DRUGS (6)
  1. DOXORUBICIN HYDROCHLORIDE (CAELYX) [Suspect]
     Indication: MALIGNANT PERITONEAL NEOPLASM
     Dosage: 60 MINUTES ON DAY 1 OF 28 DAY CYCLE
     Route: 042
  2. DOXORUBICIN HYDROCHLORIDE (CAELYX) [Suspect]
     Indication: FALLOPIAN TUBE CANCER
     Dosage: 60 MINUTES ON DAY 1 OF 28 DAY CYCLE
     Route: 042
  3. DOXORUBICIN HYDROCHLORIDE (CAELYX) [Suspect]
     Indication: OVARIAN EPITHELIAL CANCER
     Dosage: 60 MINUTES ON DAY 1 OF 28 DAY CYCLE
     Route: 042
  4. PANITUMUMAB [Suspect]
     Indication: FALLOPIAN TUBE CANCER
     Dosage: OVER 60 MINUTES ON DAY 1 AND DAY 15 ON EACH 28-DAY TREATMENT CYCLE
     Route: 050
  5. PANITUMUMAB [Suspect]
     Indication: MALIGNANT PERITONEAL NEOPLASM
     Dosage: OVER 60 MINUTES ON DAY 1 AND DAY 15 ON EACH 28-DAY TREATMENT CYCLE
     Route: 050
  6. PANITUMUMAB [Suspect]
     Indication: OVARIAN EPITHELIAL CANCER
     Dosage: OVER 60 MINUTES ON DAY 1 AND DAY 15 ON EACH 28-DAY TREATMENT CYCLE
     Route: 050

REACTIONS (26)
  - Anaemia [Unknown]
  - Neutropenia [Unknown]
  - Infection [Unknown]
  - Fatigue [Unknown]
  - Diarrhoea [Unknown]
  - Nausea [Unknown]
  - Vomiting [Unknown]
  - Stomatitis [Unknown]
  - Skin toxicity [Unknown]
  - Rash [Unknown]
  - Pain [Unknown]
  - Disease progression [Unknown]
  - Hypocalcaemia [Unknown]
  - Hypomagnesaemia [Unknown]
  - Hypersensitivity [Unknown]
  - Oedema [Unknown]
  - Nail toxicity [Unknown]
  - Mucosal inflammation [Unknown]
  - Alopecia [Unknown]
  - Palmar-plantar erythrodysaesthesia syndrome [Unknown]
  - Constipation [Unknown]
  - Dry eye [Unknown]
  - Peripheral sensory neuropathy [Unknown]
  - Thrombocytopenia [Unknown]
  - Conjunctivitis [Unknown]
  - Keratitis [Unknown]
